FAERS Safety Report 10188086 (Version 1)
Quarter: 2014Q2

REPORT INFORMATION
  Report Type: Spontaneous
  Country: US (occurrence: US)
  Receive Date: 20140522
  Receipt Date: 20140522
  Transmission Date: 20141212
  Serious: No
  Sender: FDA-Public Use
  Company Number: US-SA-2013SA099270

PATIENT
  Age: 66 Year
  Sex: Male
  Weight: 81 kg

DRUGS (4)
  1. LANTUS SOLOSTAR [Suspect]
     Indication: TYPE 2 DIABETES MELLITUS
     Dosage: DOSE:28 UNIT(S)
     Route: 058
  2. LANTUS SOLOSTAR [Suspect]
     Indication: TYPE 2 DIABETES MELLITUS
     Dosage: DOSE:- INCRESDED TO 15-16 UNITS
     Route: 058
  3. SOLOSTAR [Concomitant]
  4. ORAL ANTIDIABETICS [Concomitant]

REACTIONS (3)
  - Injection site atrophy [Unknown]
  - Blood glucose increased [Unknown]
  - Drug ineffective [Unknown]
